FAERS Safety Report 6240472-3 (Version None)
Quarter: 2009Q2

REPORT INFORMATION
  Report Type: 
  Country: None (occurrence: None)
  Receive Date: 20090623
  Receipt Date: 20090409
  Transmission Date: 20091009
  Serious: No
  Sender: FDA-Public Use
  Company Number: US-ASTRAZENECA-2009UW06550

PATIENT
  Age: 37 Year
  Sex: Female
  Weight: 206.8 kg

DRUGS (12)
  1. PULMICORT FLEXHALER [Suspect]
     Indication: ASTHMA
     Route: 055
  2. TOPAMAX [Concomitant]
  3. FROVA [Concomitant]
  4. NIASPAN [Concomitant]
  5. LISINOPRIL [Concomitant]
     Route: 048
  6. BYSTOLIC [Concomitant]
  7. SIMVASTATIN [Concomitant]
  8. TRIAMTERENE AND HYDROCHLOROTHIAZIDE [Concomitant]
  9. LASIX [Concomitant]
  10. SINGULAIR [Concomitant]
  11. MAXAIR [Concomitant]
  12. HYDROXYZINE [Concomitant]

REACTIONS (3)
  - COUGH [None]
  - DRUG INEFFECTIVE [None]
  - DYSPNOEA [None]
